FAERS Safety Report 12076114 (Version 1)
Quarter: 2016Q1

REPORT INFORMATION
  Report Type: Spontaneous
  Country: US (occurrence: US)
  Receive Date: 20160215
  Receipt Date: 20160215
  Transmission Date: 20160526
  Serious: Yes (Hospitalization, Other)
  Sender: FDA-Public Use
  Company Number: US-009507513-1602USA006072

PATIENT
  Age: 51 Year
  Sex: Male

DRUGS (6)
  1. SIROLIMUS. [Interacting]
     Active Substance: SIROLIMUS
     Indication: PROPHYLAXIS AGAINST GRAFT VERSUS HOST DISEASE
     Dosage: 1 MG/DAY
  2. CIPROFLOXACIN. [Concomitant]
     Active Substance: CIPROFLOXACIN
     Dosage: 500 MG PER DAY
  3. NOXAFIL [Suspect]
     Active Substance: POSACONAZOLE
     Indication: ANTIFUNGAL PROPHYLAXIS
     Dosage: 100 MG THREE TIMES PER DAY
     Route: 048
  4. GANCICLOVIR. [Concomitant]
     Active Substance: GANCICLOVIR
     Dosage: 400 MG, TWICE DAILY
     Route: 042
  5. SIROLIMUS. [Interacting]
     Active Substance: SIROLIMUS
     Dosage: 2 MG/DAY
  6. SIROLIMUS. [Interacting]
     Active Substance: SIROLIMUS
     Dosage: LOADING DOSE OF 4 MG

REACTIONS (5)
  - Hepatitis B [Unknown]
  - Drug-induced liver injury [Unknown]
  - Drug interaction [Unknown]
  - Drug level increased [Recovered/Resolved]
  - Venoocclusive disease [Unknown]
